FAERS Safety Report 13269615 (Version 4)
Quarter: 2021Q1

REPORT INFORMATION
  Report Type: Report from Study
  Country: MX (occurrence: MX)
  Receive Date: 20170224
  Receipt Date: 20210114
  Transmission Date: 20210419
  Serious: Yes (Other)
  Sender: FDA-Public Use
  Company Number: PHHY2016MX164842

PATIENT
  Age: 73 Year
  Sex: Female
  Weight: 72 kg

DRUGS (13)
  1. FLONORM [Concomitant]
     Indication: GASTRITIS
     Dosage: 1 DF, QD
     Route: 048
     Dates: start: 201704, end: 201704
  2. EXFORGE [Suspect]
     Active Substance: AMLODIPINE BESYLATE\VALSARTAN
     Indication: HYPERTENSION
     Dosage: 1 DF, (AMLODIPINE 5 MG AND VALSARTAN 160 MG) QD (SINCE 6 YEARS)
     Route: 065
  3. LEVOTHYROXINE. [Concomitant]
     Active Substance: LEVOTHYROXINE
     Dosage: 0.5 DF, QD
     Route: 048
     Dates: start: 201607
  4. METOPROLOL. [Concomitant]
     Active Substance: METOPROLOL
     Indication: HYPERTENSION
     Dosage: 1 DF, UNK
     Route: 048
     Dates: start: 201704
  5. EXFORGE HCT [Suspect]
     Active Substance: AMLODIPINE BESYLATE\HYDROCHLOROTHIAZIDE\VALSARTAN
     Dosage: 0.5 DF, QD
     Route: 065
  6. LEVOTHYROXINE. [Concomitant]
     Active Substance: LEVOTHYROXINE
     Indication: HYPERTHYROIDISM
     Dosage: 1 DF, QD
     Route: 048
     Dates: start: 2015
  7. LIBERTRIM [Concomitant]
     Active Substance: TRIMEBUTINE
     Indication: GASTRITIS
     Dosage: UNK
     Route: 048
     Dates: start: 201704, end: 20170503
  8. CELECOXIB. [Concomitant]
     Active Substance: CELECOXIB
     Indication: PERIPHERAL VASCULAR DISORDER
     Dosage: 1 DF, QD, 8 YEARS AGO
     Route: 048
  9. EXFORGE HCT [Suspect]
     Active Substance: AMLODIPINE BESYLATE\HYDROCHLOROTHIAZIDE\VALSARTAN
     Indication: HYPERTENSION
     Dosage: 1 DF (AMLODIPINE 5 MG, HYDROCHLOROTHIAZIDE 12.5 MG, VALSARTAN 160 MG), QD IN THE MORNING
     Route: 048
  10. EXFORGE HCT [Suspect]
     Active Substance: AMLODIPINE BESYLATE\HYDROCHLOROTHIAZIDE\VALSARTAN
     Dosage: 1.5 DF (AMLODIPINE 5 MG, HYDROCHLOROTHIAZIDE 12.5 MG, VALSARTAN 160 MG), QD (1 IN MOR AND ? IN AFT)
     Route: 065
  11. EXFORGE HCT [Suspect]
     Active Substance: AMLODIPINE BESYLATE\HYDROCHLOROTHIAZIDE\VALSARTAN
     Dosage: 1 DF (AMLODIPINE 5 MG, HYDROCHLOROTHIAZIDE 12.5 MG, VALSARTAN 160 MG), QD IN THE MORNING
     Route: 048
  12. EUTIROX [Concomitant]
     Active Substance: LEVOTHYROXINE SODIUM
     Indication: HYPOTHYROIDISM
     Dosage: 0.25 DF, QD (SINCE 26 YEARS AGO)
     Route: 048
  13. TAFIL [Concomitant]
     Active Substance: ALPRAZOLAM
     Indication: INSOMNIA
     Dosage: 1 DF, QHS
     Route: 048
     Dates: start: 20170218

REACTIONS (40)
  - Blood pressure increased [Not Recovered/Not Resolved]
  - Fear [Unknown]
  - Gastritis [Not Recovered/Not Resolved]
  - Fatigue [Unknown]
  - Onychoclasis [Unknown]
  - Peripheral swelling [Not Recovered/Not Resolved]
  - Malaise [Unknown]
  - Diarrhoea [Unknown]
  - Myalgia [Unknown]
  - Suffocation feeling [Not Recovered/Not Resolved]
  - Blood pressure fluctuation [Not Recovered/Not Resolved]
  - Oropharyngeal pain [Unknown]
  - Gastrointestinal infection [Recovered/Resolved]
  - Back pain [Not Recovered/Not Resolved]
  - Nausea [Unknown]
  - Arthralgia [Unknown]
  - Cardiomegaly [Not Recovered/Not Resolved]
  - Varicose vein [Unknown]
  - Decreased appetite [Unknown]
  - Abdominal discomfort [Not Recovered/Not Resolved]
  - Colitis [Not Recovered/Not Resolved]
  - Vomiting [Unknown]
  - Chest pain [Unknown]
  - Product prescribing error [Not Recovered/Not Resolved]
  - Incorrect dose administered [Not Recovered/Not Resolved]
  - Overweight [Unknown]
  - Dehydration [Unknown]
  - Alopecia [Unknown]
  - Dysphonia [Not Recovered/Not Resolved]
  - Snoring [Unknown]
  - Blood pressure decreased [Recovered/Resolved]
  - Wrong technique in product usage process [Recovered/Resolved]
  - Apathy [Not Recovered/Not Resolved]
  - Influenza [Not Recovered/Not Resolved]
  - Fluid retention [Unknown]
  - Secretion discharge [Unknown]
  - Anxiety [Unknown]
  - Gastrooesophageal reflux disease [Unknown]
  - Agitation [Unknown]
  - Weight decreased [Unknown]

NARRATIVE: CASE EVENT DATE: 201701
